FAERS Safety Report 8893479 (Version 1)
Quarter: 2012Q4

REPORT INFORMATION
  Report Type: 
  Country: US (occurrence: US)
  Receive Date: 20121107
  Receipt Date: 20121107
  Transmission Date: 20130627
  Serious: No
  Sender: FDA-Public Use
  Company Number: US-AMGEN-USASP2011060609

PATIENT
  Age: 29 Year

DRUGS (5)
  1. ENBREL [Suspect]
     Indication: PRODUCT USED FOR UNKNOWN INDICATION
     Dosage: 50 mg, qwk
     Route: 058
  2. METHOTREXATE [Concomitant]
     Dosage: 2.5 mg, UNK
  3. GUMMY BEAR VITAMINS [Concomitant]
  4. PRILOSEC [Concomitant]
     Dosage: 20 mg, UNK
  5. CLARITIN [Concomitant]
     Dosage: 10 mg, UNK

REACTIONS (2)
  - Injection site erythema [Unknown]
  - Injection site warmth [Unknown]
